FAERS Safety Report 26113540 (Version 1)
Quarter: 2025Q4

REPORT INFORMATION
  Report Type: Spontaneous
  Country: US (occurrence: US)
  Receive Date: 20251202
  Receipt Date: 20251202
  Transmission Date: 20260118
  Serious: Yes (Other)
  Sender: NOVO NORDISK
  Company Number: US-NOVOPROD-1573559

PATIENT
  Age: 29 Year
  Sex: Female
  Weight: 93 kg

DRUGS (4)
  1. OZEMPIC [Suspect]
     Active Substance: SEMAGLUTIDE
     Indication: Product used for unknown indication
     Dosage: 1 MG, QW
     Route: 058
  2. OZEMPIC [Suspect]
     Active Substance: SEMAGLUTIDE
     Dosage: 2 MG, QW(INCREASED)
     Route: 058
     Dates: start: 20251106
  3. PREDNISONE [Concomitant]
     Active Substance: PREDNISONE
     Indication: Product used for unknown indication
     Dosage: 1 TABLET
     Route: 048
     Dates: start: 20251104, end: 20251114
  4. BROMPHENIRAMINE [Concomitant]
     Active Substance: BROMPHENIRAMINE
     Indication: Product used for unknown indication
     Dosage: UNK
     Dates: start: 20251104, end: 20251114

REACTIONS (8)
  - Tibia fracture [Unknown]
  - Fall [Unknown]
  - Vitamin D deficiency [Unknown]
  - Weight increased [Unknown]
  - Type V hyperlipidaemia [Unknown]
  - Hepatic enzyme increased [Unknown]
  - Abdominal pain upper [Unknown]
  - Abdominal discomfort [Unknown]
